FAERS Safety Report 17749427 (Version 4)
Quarter: 2020Q3

REPORT INFORMATION
  Report Type: Spontaneous
  Country: KR (occurrence: KR)
  Receive Date: 20200506
  Receipt Date: 20200812
  Transmission Date: 20201102
  Serious: Yes (Hospitalization, Other)
  Sender: FDA-Public Use
  Company Number: KR-009507513-2003KOR011022

PATIENT
  Age: 39 Year
  Sex: Female

DRUGS (2)
  1. IMPLANON NXT [Suspect]
     Active Substance: ETONOGESTREL
     Dosage: THE FIRST INSERTION
     Route: 059
  2. IMPLANON NXT [Suspect]
     Active Substance: ETONOGESTREL
     Dosage: IMPLANT ON LEFT ARM
     Route: 059
     Dates: start: 20170504, end: 20200611

REACTIONS (12)
  - Menstruation irregular [Not Recovered/Not Resolved]
  - Device deployment issue [Recovered/Resolved]
  - Emotional distress [Unknown]
  - Device issue [Unknown]
  - Incorrect product administration duration [Unknown]
  - Device embolisation [Recovered/Resolved]
  - Menometrorrhagia [Not Recovered/Not Resolved]
  - Depression [Unknown]
  - Complication associated with device [Recovered/Resolved]
  - Complication of device removal [Recovered/Resolved]
  - Lung carcinoma cell type unspecified stage 0 [Unknown]
  - Procedural pain [Unknown]

NARRATIVE: CASE EVENT DATE: 20170504
